FAERS Safety Report 8001251-X (Version None)
Quarter: 2011Q4

REPORT INFORMATION
  Report Type: 
  Country: None (occurrence: None)
  Receive Date: 20111222
  Receipt Date: 20111214
  Transmission Date: 20120403
  Serious: Yes (Death)
  Sender: FDA-Public Use
  Company Number: DE-ELI_LILLY_AND_COMPANY-DE201112004006

PATIENT
  Age: 73 Year
  Sex: Female
  Weight: 70 kg

DRUGS (4)
  1. ASPIRIN [Concomitant]
     Indication: CORONARY ARTERY DISEASE
     Dosage: 100 MG, LONG TERM USE
     Route: 048
  2. LIQUAEMIN INJ [Concomitant]
     Indication: ANGINA UNSTABLE
     Dosage: UNK
     Dates: start: 20110712
  3. AGGRASTAT [Concomitant]
     Indication: ANGINA UNSTABLE
     Dosage: 8 ML/H
     Route: 042
     Dates: start: 20110712
  4. EFFIENT [Suspect]
     Indication: ANGINA UNSTABLE
     Dosage: 10 MG, QD
     Route: 048
     Dates: start: 20110712

REACTIONS (2)
  - PROCEDURAL COMPLICATION [None]
  - PULMONARY HAEMORRHAGE [None]
